FAERS Safety Report 9381865 (Version 2)
Quarter: 2013Q4

REPORT INFORMATION
  Report Type: Spontaneous
  Country: IT (occurrence: IT)
  Receive Date: 20130703
  Receipt Date: 20131014
  Transmission Date: 20140711
  Serious: Yes (Life-Threatening)
  Sender: FDA-Public Use
  Company Number: PHHY2013IT068521

PATIENT
  Sex: Female

DRUGS (5)
  1. CITALOPRAM [Suspect]
     Indication: SUICIDE ATTEMPT
     Dosage: 420 MG, ONCE/SINGLE
     Route: 048
     Dates: start: 20130623, end: 20130623
  2. DIAZEPAM [Suspect]
     Indication: SUICIDE ATTEMPT
     Dosage: 150 MG, ONCE/SINGLE
     Route: 048
     Dates: start: 20130623, end: 20130623
  3. IBUPROFEN [Suspect]
     Indication: SUICIDE ATTEMPT
     Dosage: 4800 MG, ONCE/SINGLE
     Route: 048
     Dates: start: 20130623, end: 20130623
  4. TAVOR (LORAZEPAM) [Suspect]
     Indication: SUICIDE ATTEMPT
     Dosage: 50 MG, ONCE/SINGLE
     Route: 048
     Dates: start: 20130623, end: 20130623
  5. LEXOTAN [Suspect]
     Indication: SUICIDE ATTEMPT
     Dosage: 10.5 MG, ONCE/SINGLE
     Dates: start: 20130623, end: 20130623

REACTIONS (4)
  - Suicide attempt [Recovered/Resolved]
  - Coma [Recovered/Resolved]
  - Sopor [Recovered/Resolved]
  - Electrocardiogram QT prolonged [Recovered/Resolved]
